FAERS Safety Report 24178679 (Version 1)
Quarter: 2024Q3

REPORT INFORMATION
  Report Type: Spontaneous
  Country: US (occurrence: US)
  Receive Date: 20240806
  Receipt Date: 20240806
  Transmission Date: 20241017
  Serious: Yes (Hospitalization)
  Sender: ELI LILLY AND CO
  Company Number: US-ELI_LILLY_AND_COMPANY-US202407017466

PATIENT
  Age: 55 Year
  Sex: Female

DRUGS (12)
  1. MOUNJARO [Suspect]
     Active Substance: TIRZEPATIDE
     Indication: Hepatic steatosis
     Dosage: 2.5 MG, UNKNOWN
     Route: 065
  2. MOUNJARO [Suspect]
     Active Substance: TIRZEPATIDE
     Indication: Hepatic steatosis
     Dosage: 2.5 MG, UNKNOWN
     Route: 065
  3. MOUNJARO [Suspect]
     Active Substance: TIRZEPATIDE
     Indication: Hepatic steatosis
     Dosage: 2.5 MG, UNKNOWN
     Route: 065
  4. MOUNJARO [Suspect]
     Active Substance: TIRZEPATIDE
     Indication: Hepatic steatosis
     Dosage: 2.5 MG, UNKNOWN
     Route: 065
  5. MOUNJARO [Suspect]
     Active Substance: TIRZEPATIDE
     Indication: Hepatic steatosis
     Dosage: 5 MG, UNKNOWN
     Route: 065
  6. MOUNJARO [Suspect]
     Active Substance: TIRZEPATIDE
     Indication: Hepatic steatosis
     Dosage: 5 MG, UNKNOWN
     Route: 065
  7. MOUNJARO [Suspect]
     Active Substance: TIRZEPATIDE
     Indication: Hepatic steatosis
     Dosage: 5 MG, UNKNOWN
     Route: 065
  8. MOUNJARO [Suspect]
     Active Substance: TIRZEPATIDE
     Indication: Hepatic steatosis
     Dosage: 5 MG, UNKNOWN
     Route: 065
  9. MOUNJARO [Suspect]
     Active Substance: TIRZEPATIDE
     Indication: Hepatic steatosis
     Dosage: 7.5 MG, UNKNOWN
     Route: 065
  10. MOUNJARO [Suspect]
     Active Substance: TIRZEPATIDE
     Indication: Hepatic steatosis
     Dosage: 7.5 MG, UNKNOWN
     Route: 065
  11. MOUNJARO [Suspect]
     Active Substance: TIRZEPATIDE
     Indication: Hepatic steatosis
     Dosage: 7.5 MG, UNKNOWN
     Route: 065
  12. MOUNJARO [Suspect]
     Active Substance: TIRZEPATIDE
     Indication: Hepatic steatosis
     Dosage: 7.5 MG, UNKNOWN
     Route: 065

REACTIONS (6)
  - Gastrooesophageal reflux disease [Recovered/Resolved]
  - Off label use [Unknown]
  - Weight decreased [Recovering/Resolving]
  - Decreased appetite [Recovering/Resolving]
  - Nausea [Recovering/Resolving]
  - Dehydration [Recovering/Resolving]
